FAERS Safety Report 15261204 (Version 1)
Quarter: 2018Q3

REPORT INFORMATION
  Report Type: Spontaneous
  Country: US (occurrence: US)
  Receive Date: 20180719
  Receipt Date: 20180719
  Transmission Date: 20181010
  Serious: No
  Sender: FDA-Public Use
  Company Number: None

PATIENT
  Age: 80 Year
  Sex: Female

DRUGS (5)
  1. SAMSCA [Suspect]
     Active Substance: TOLVAPTAN
     Indication: INAPPROPRIATE ANTIDIURETIC HORMONE SECRETION
     Route: 048
  2. LEVOTHYROXINE 50 MCG [Concomitant]
     Active Substance: LEVOTHYROXINE
  3. CIPROFLOXACIN. [Concomitant]
     Active Substance: CIPROFLOXACIN
  4. MIDODRINE 2.5MG [Concomitant]
  5. FLUDROCORTISONE 0.1 MG [Concomitant]
     Active Substance: FLUDROCORTISONE

REACTIONS (2)
  - Myalgia [None]
  - Urine output increased [None]

NARRATIVE: CASE EVENT DATE: 20180718
